FAERS Safety Report 5777957-X (Version None)
Quarter: 2008Q2

REPORT INFORMATION
  Report Type: 
  Country: None (occurrence: None)
  Receive Date: 20080618
  Receipt Date: 20080618
  Transmission Date: 20081010
  Serious: Yes (Other)
  Sender: FDA-Public Use
  Company Number: None

PATIENT
  Age: 18 Year
  Sex: Female
  Weight: 47.1741 kg

DRUGS (1)
  1. SEASONALE [Suspect]
     Indication: METRORRHAGIA
     Dosage: ONE Q DAY PO
     Route: 048

REACTIONS (2)
  - METRORRHAGIA [None]
  - THERAPEUTIC RESPONSE UNEXPECTED WITH DRUG SUBSTITUTION [None]
